FAERS Safety Report 6491172-6 (Version None)
Quarter: 2009Q4

REPORT INFORMATION
  Report Type: 
  Country: None (occurrence: None)
  Receive Date: 20091211
  Receipt Date: 20091202
  Transmission Date: 20100525
  Serious: Yes (Death, Hospitalization, Other)
  Sender: FDA-Public Use
  Company Number: IL-WYE-H11608309

PATIENT
  Age: 23 Year
  Sex: Male

DRUGS (3)
  1. RAPAMUNE [Suspect]
     Dosage: UNSPECIFIED
     Route: 048
  2. CYCLOSPORINE [Suspect]
  3. CELLCEPT [Suspect]
     Indication: GRAFT VERSUS HOST DISEASE
     Dosage: UNSPECIFIED
     Route: 065
     Dates: start: 20081231

REACTIONS (3)
  - ASPERGILLOSIS [None]
  - GRAFT VERSUS HOST DISEASE [None]
  - PROGRESSIVE MULTIFOCAL LEUKOENCEPHALOPATHY [None]
